FAERS Safety Report 9392282 (Version 1)
Quarter: 2013Q3

REPORT INFORMATION
  Report Type: Spontaneous
  Country: US (occurrence: US)
  Receive Date: 20130710
  Receipt Date: 20130710
  Transmission Date: 20140515
  Serious: No
  Sender: FDA-Public Use
  Company Number: US-BAYER-2013-058459

PATIENT
  Age: 81 Year
  Sex: Female
  Weight: 54.42 kg

DRUGS (4)
  1. ALEVE CAPLET [Suspect]
     Indication: BACK PAIN
     Dosage: 1 DF, BID
     Route: 048
     Dates: start: 20130430
  2. BAYER ASPIRIN REGIMEN ADULT LOW STRENGTH [Concomitant]
  3. COREG [Concomitant]
  4. ATACAND [CANDESARTAN CILEXETIL] [Concomitant]

REACTIONS (1)
  - Somnolence [Not Recovered/Not Resolved]
